FAERS Safety Report 12223918 (Version 4)
Quarter: 2016Q3

REPORT INFORMATION
  Report Type: Report from Study
  Country: NL (occurrence: NL)
  Receive Date: 20160330
  Receipt Date: 20160825
  Transmission Date: 20161109
  Serious: Yes (Hospitalization)
  Sender: FDA-Public Use
  Company Number: NL-ABBVIE-16P-114-1593316-00

PATIENT
  Sex: Male
  Weight: 74 kg

DRUGS (2)
  1. DUODOPA [Suspect]
     Active Substance: CARBIDOPA\LEVODOPA
     Dosage: DOSE ADAPTED
     Route: 050
     Dates: start: 20160111
  2. DUODOPA [Suspect]
     Active Substance: CARBIDOPA\LEVODOPA
     Indication: PARKINSON^S DISEASE
     Dosage: MORNING DOSE 9.0, CONTINUOUS DOSE 7.0, EXTRA DOSE 5.0, NIGHT DOSE 4.0
     Route: 050
     Dates: start: 20091104

REACTIONS (13)
  - Drug effect variable [Not Recovered/Not Resolved]
  - Stoma site irritation [Not Recovered/Not Resolved]
  - Decreased appetite [Unknown]
  - Dehydration [Unknown]
  - Off label use [Not Recovered/Not Resolved]
  - Diarrhoea [Unknown]
  - Stoma site erythema [Not Recovered/Not Resolved]
  - Pyrexia [Unknown]
  - Respiratory tract infection [Unknown]
  - Hyperkinesia [Not Recovered/Not Resolved]
  - Parkinson^s disease [Unknown]
  - Weight decreased [Unknown]
  - Stoma site extravasation [Not Recovered/Not Resolved]

NARRATIVE: CASE EVENT DATE: 2009
